FAERS Safety Report 5488302-1 (Version None)
Quarter: 2007Q4

REPORT INFORMATION
  Report Type: 
  Country: None (occurrence: None)
  Receive Date: 20071005
  Receipt Date: 20070614
  Transmission Date: 20080405
  Serious: Yes (Other)
  Sender: FDA-Public Use
  Company Number: PHEH2007US08846

PATIENT
  Age: 55 Year
  Sex: Female
  Weight: 50.8 kg

DRUGS (1)
  1. TEKTURNA [Suspect]
     Indication: HYPERTENSION
     Dosage: 150 MG, ONCE/SINGLE,
     Dates: start: 20070612, end: 20070612

REACTIONS (2)
  - ANGIOEDEMA [None]
  - RASH GENERALISED [None]
